FAERS Safety Report 6134279-5 (Version None)
Quarter: 2009Q1

REPORT INFORMATION
  Report Type: 
  Country: None (occurrence: None)
  Receive Date: 20090325
  Receipt Date: 20090320
  Transmission Date: 20090719
  Serious: Yes (Life-Threatening)
  Sender: FDA-Public Use
  Company Number: 2009SP001060

PATIENT
  Age: 28 Year
  Sex: Female

DRUGS (3)
  1. BETAMETHASONE SODIUM PHOSPHATE [Suspect]
     Indication: NEONATAL RESPIRATORY DISTRESS SYNDROME
     Dates: start: 20061214, end: 20061216
  2. NICARDIPINE HCL [Suspect]
     Indication: DRUG USE FOR UNKNOWN INDICATION
     Dosage: 30 MG; Q12H; IV
     Route: 042
     Dates: start: 20061031, end: 20061216
  3. SALBUTAMOL [Concomitant]

REACTIONS (8)
  - ACUTE PULMONARY OEDEMA [None]
  - CHILLS [None]
  - DRUG EXPOSURE DURING PREGNANCY [None]
  - DYSPEPSIA [None]
  - DYSPNOEA [None]
  - PLEURAL EFFUSION [None]
  - PRE-ECLAMPSIA [None]
  - PREMATURE LABOUR [None]
